FAERS Safety Report 7320913-0 (Version None)
Quarter: 2011Q1

REPORT INFORMATION
  Report Type: 
  Country: None (occurrence: None)
  Receive Date: 20110228
  Receipt Date: 20110222
  Transmission Date: 20110831
  Serious: Yes (Disabling, Other)
  Sender: FDA-Public Use
  Company Number: US-MERCK-1102USA02588

PATIENT
  Sex: Female

DRUGS (10)
  1. LEVOTHYROXINE SODIUM [Concomitant]
     Indication: THYROID DISORDER
     Route: 048
  2. DILTIAZEM HYDROCHLORIDE [Concomitant]
     Indication: CARDIAC DISORDER
     Route: 048
  3. OMEGA-3 MARINE TRIGLYCERIDES [Concomitant]
     Indication: BLOOD CHOLESTEROL
     Route: 048
  4. METFORMIN [Concomitant]
     Route: 048
  5. METOPROLOL [Concomitant]
     Indication: CARDIAC DISORDER
     Route: 048
  6. ACCUPRIL [Concomitant]
     Indication: CARDIAC DISORDER
     Route: 048
  7. HYDROCHLOROTHIAZIDE AND TRIAMTERENE [Concomitant]
     Indication: POLYURIA
     Route: 048
  8. ASPIRIN [Concomitant]
     Route: 048
  9. ZOCOR [Suspect]
     Indication: CARDIAC DISORDER
     Route: 048
     Dates: start: 20030101, end: 20050101
  10. GLIPIZIDE [Concomitant]
     Indication: DIABETES MELLITUS
     Route: 048

REACTIONS (8)
  - INTENTION TREMOR [None]
  - OEDEMA PERIPHERAL [None]
  - FATIGUE [None]
  - ASTHENIA [None]
  - DYSSTASIA [None]
  - TREMOR [None]
  - MUSCLE SPASMS [None]
  - PAIN IN EXTREMITY [None]
